FAERS Safety Report 10229839 (Version 1)
Quarter: 2014Q2

REPORT INFORMATION
  Report Type: Spontaneous
  Country: GB (occurrence: GB)
  Receive Date: 20140611
  Receipt Date: 20140611
  Transmission Date: 20141212
  Serious: Yes (Hospitalization)
  Sender: FDA-Public Use
  Company Number: GB-009507513-1406GBR005039

PATIENT
  Age: 56 Year
  Sex: Male
  Weight: 90 kg

DRUGS (6)
  1. SIMVASTATIN [Suspect]
     Indication: HYPERCHOLESTEROLAEMIA
     Dosage: 20 MG, UNK
     Route: 048
     Dates: start: 20100107, end: 20140521
  2. AMLODIPINE [Suspect]
     Indication: HYPERTENSION
     Dosage: 5 MG, UNK
     Dates: start: 2010
  3. BECLOMETHASONE DIPROPIONATE [Concomitant]
     Dosage: UNK
  4. FOLIC ACID [Concomitant]
     Dosage: UNK
  5. METHOTREXATE [Concomitant]
     Indication: PSORIASIS
     Dosage: 27.5 MG, QW
  6. ENALAPRIL MALEATE [Concomitant]
     Indication: HYPERTENSION
     Dosage: UNK

REACTIONS (6)
  - Blood pressure increased [Recovered/Resolved with Sequelae]
  - Heart rate increased [Recovered/Resolved with Sequelae]
  - Extrasystoles [Recovered/Resolved with Sequelae]
  - Dizziness [Unknown]
  - Labelled drug-drug interaction medication error [Unknown]
  - Condition aggravated [Unknown]
